FAERS Safety Report 15669470 (Version 1)
Quarter: 2018Q4

REPORT INFORMATION
  Report Type: Spontaneous
  Country: US (occurrence: US)
  Receive Date: 20181129
  Receipt Date: 20181129
  Transmission Date: 20190205
  Serious: Yes (Hospitalization, Other)
  Sender: FDA-Public Use
  Company Number: US-APOTEX-2018AP025795

PATIENT
  Age: 33 Year
  Sex: Male

DRUGS (2)
  1. AMIODARONE [Suspect]
     Active Substance: AMIODARONE
     Indication: ATRIAL FLUTTER
     Dosage: UNK
     Route: 065
  2. ISOPROTERENOL                      /00006301/ [Concomitant]
     Active Substance: ISOPROTERENOL
     Indication: ATRIOVENTRICULAR BLOCK
     Dosage: UNK
     Route: 065

REACTIONS (1)
  - Bradycardia [Unknown]
